FAERS Safety Report 18096598 (Version 1)
Quarter: 2020Q3

REPORT INFORMATION
  Report Type: Spontaneous
  Country: US (occurrence: US)
  Receive Date: 20200730
  Receipt Date: 20200730
  Transmission Date: 20201103
  Serious: Yes (Death, Other)
  Sender: FDA-Public Use
  Company Number: US-GILEAD-2020-0486979

PATIENT
  Age: 89 Year
  Sex: Female
  Weight: 61.4 kg

DRUGS (17)
  1. PLASMA [Concomitant]
     Active Substance: HUMAN PLASMA
  2. EZETIMIBE. [Concomitant]
     Active Substance: EZETIMIBE
  3. MEROPENEM. [Concomitant]
     Active Substance: MEROPENEM
  4. AMIODARONE [Concomitant]
     Active Substance: AMIODARONE
  5. CLOPIDOGREL [Concomitant]
     Active Substance: CLOPIDOGREL BISULFATE
  6. FAMOTIDINE. [Concomitant]
     Active Substance: FAMOTIDINE
  7. DEXAMETHASONE. [Concomitant]
     Active Substance: DEXAMETHASONE
  8. ASPIRIN (E.C.) [Concomitant]
     Active Substance: ASPIRIN
  9. METOPROLOL. [Concomitant]
     Active Substance: METOPROLOL
  10. PRAVASTATIN. [Concomitant]
     Active Substance: PRAVASTATIN
  11. REMDESIVIR. [Suspect]
     Active Substance: REMDESIVIR
     Indication: COVID-19
     Dosage: UNK
     Route: 042
     Dates: start: 20200708, end: 20200713
  12. CEFEPIME [Concomitant]
     Active Substance: CEFEPIME HYDROCHLORIDE
  13. CEFTOLOZANE [Concomitant]
     Active Substance: CEFTOLOZANE
  14. ENOXAPARIN [Concomitant]
     Active Substance: ENOXAPARIN
  15. AMLODIPINE [Concomitant]
     Active Substance: AMLODIPINE BESYLATE
  16. TAZOBACTAM [Concomitant]
     Active Substance: TAZOBACTAM
  17. ATORVASTATIN [Concomitant]
     Active Substance: ATORVASTATIN

REACTIONS (4)
  - Pneumonia pseudomonal [Not Recovered/Not Resolved]
  - Death [Fatal]
  - Renal impairment [Not Recovered/Not Resolved]
  - Hypoxia [Not Recovered/Not Resolved]

NARRATIVE: CASE EVENT DATE: 20200726
